FAERS Safety Report 6230530-1 (Version None)
Quarter: 2009Q2

REPORT INFORMATION
  Report Type: 
  Country: None (occurrence: None)
  Receive Date: 20090615
  Receipt Date: 20090608
  Transmission Date: 20091009
  Serious: No
  Sender: FDA-Public Use
  Company Number: US-ABBOTT-09P-163-0578686-00

PATIENT
  Sex: Female
  Weight: 66.738 kg

DRUGS (6)
  1. TRILIPIX [Suspect]
     Indication: BLOOD CHOLESTEROL INCREASED
     Dates: start: 20090529, end: 20090605
  2. LISINOPRIL [Concomitant]
     Indication: HYPERTENSION
  3. LEVOTHYROXINE SODIUM [Concomitant]
     Indication: HYPOTHYROIDISM
  4. SALSALATE [Concomitant]
     Indication: ARTHRITIS
     Dosage: AS NEEDED FOR PAIN
  5. TYLENOL (CAPLET) [Concomitant]
     Indication: ARTHRITIS
     Dosage: 1-2 TABLETS
  6. XANAX [Concomitant]
     Indication: PANIC ATTACK

REACTIONS (2)
  - DISORIENTATION [None]
  - DIZZINESS [None]
